FAERS Safety Report 12120189 (Version 2)
Quarter: 2016Q2

REPORT INFORMATION
  Report Type: Report from Study
  Country: CA (occurrence: CA)
  Receive Date: 20160226
  Receipt Date: 20160421
  Transmission Date: 20160815
  Serious: Yes (Other)
  Sender: FDA-Public Use
  Company Number: CA-AMGEN-CANSL2016022455

PATIENT
  Age: 62 Year
  Sex: Female
  Weight: 61.68 kg

DRUGS (12)
  1. PANTOLOC [Concomitant]
     Active Substance: PANTOPRAZOLE SODIUM
     Dosage: 40 MG, BID
  2. CALCIUM + VITAMIN D [Concomitant]
     Active Substance: CALCIUM\VITAMIN D
     Dosage: 400 UI-500MG, BID
  3. PROLIA [Suspect]
     Active Substance: DENOSUMAB
     Indication: OSTEOPOROSIS POSTMENOPAUSAL
     Dosage: 60 MG/ML, Q6MO
     Route: 058
     Dates: start: 2012, end: 20150820
  4. APO-AMOXI CLAV [Concomitant]
     Active Substance: AMOXICILLIN\CLAVULANATE POTASSIUM
     Dosage: 875MG-125 MG BID
  5. PREDNISONE. [Concomitant]
     Active Substance: PREDNISONE
     Dosage: 05 MG 3 TABLETS EVERY 2 DAYS
  6. LOSARTAN. [Concomitant]
     Active Substance: LOSARTAN
     Dosage: 100 MG, QD
  7. XARELTO [Concomitant]
     Active Substance: RIVAROXABAN
     Dosage: 20 MG, QD
  8. BION TEARS [Concomitant]
     Active Substance: DEXTRAN 70\HYPROMELLOSE 2910 (4000 MPA.S)
     Dosage: 1 DROP, QID
  9. ROSUVASTATIN. [Concomitant]
     Active Substance: ROSUVASTATIN
     Indication: HYPERCHOLESTEROLAEMIA
     Dosage: 10 MG, QD
     Dates: end: 20150813
  10. SALOFALK [Concomitant]
     Active Substance: MESALAMINE
     Dosage: 1 SUPPOSITORY, QD
  11. POTASSIUM [Concomitant]
     Active Substance: POTASSIUM
  12. APO-HYDRO [Concomitant]
     Active Substance: HYDROCHLOROTHIAZIDE
     Dosage: 25 MG, QD
     Dates: end: 20150813

REACTIONS (10)
  - Pulmonary embolism [Unknown]
  - Pain [Unknown]
  - Tremor [Unknown]
  - Bone disorder [Unknown]
  - Arthropathy [Unknown]
  - Asthenia [Unknown]
  - Tenderness [Unknown]
  - Thrombosis [Unknown]
  - Muscle disorder [Not Recovered/Not Resolved]
  - Skin disorder [Unknown]

NARRATIVE: CASE EVENT DATE: 2014
